FAERS Safety Report 9178701 (Version 1)
Quarter: 2012Q4

REPORT INFORMATION
  Report Type: 
  Country: US (occurrence: US)
  Receive Date: 20121029
  Receipt Date: 20121029
  Transmission Date: 20130627
  Serious: No
  Sender: FDA-Public Use
  Company Number: US-PFIZER INC-2012269605

PATIENT
  Sex: Female
  Weight: 52.15 kg

DRUGS (5)
  1. SERTRALINE HCL [Suspect]
     Indication: PANIC ATTACKS
     Dosage: 150 mg, daily
     Dates: start: 2012
  2. SERTRALINE HCL [Suspect]
     Indication: ANXIETY
  3. SIMVASTATIN [Concomitant]
     Indication: HIGH CHOLESTEROL
     Dosage: 80 mg,daily
  4. CLONAZEPAM [Concomitant]
     Indication: ANXIETY
     Dosage: half of 0.5 mg two times a day
  5. CYCLOBENZAPRINE [Concomitant]
     Indication: MUSCLE PAIN
     Dosage: 10 mg, as needed

REACTIONS (2)
  - Diarrhoea [Not Recovered/Not Resolved]
  - Abdominal pain [Unknown]
